FAERS Safety Report 17367917 (Version 1)
Quarter: 2020Q1

REPORT INFORMATION
  Report Type: Spontaneous
  Country: US (occurrence: US)
  Receive Date: 20200117
  Receipt Date: 20200117
  Transmission Date: 20200409
  Serious: No
  Sender: FDA-Public Use
  Company Number: None

PATIENT
  Age: 77 Year
  Sex: Female
  Weight: 77 kg

DRUGS (2)
  1. FASLODEX [Suspect]
     Active Substance: FULVESTRANT
     Dates: end: 20191226
  2. PALBOCICLIB (PD-0332291) [Suspect]
     Active Substance: PALBOCICLIB
     Dates: end: 20191227

REACTIONS (6)
  - White blood cell count decreased [None]
  - Aspartate aminotransferase increased [None]
  - Platelet count decreased [None]
  - Alanine aminotransferase increased [None]
  - Neutrophil count decreased [None]
  - Hepatomegaly [None]

NARRATIVE: CASE EVENT DATE: 20200108
